FAERS Safety Report 11786704 (Version 4)
Quarter: 2016Q2

REPORT INFORMATION
  Report Type: Spontaneous
  Country: US (occurrence: US)
  Receive Date: 20151130
  Receipt Date: 20160526
  Transmission Date: 20160815
  Serious: Yes (Other)
  Sender: FDA-Public Use
  Company Number: US-PFIZER INC-2015403685

PATIENT
  Age: 41 Year
  Sex: Female
  Weight: 55 kg

DRUGS (7)
  1. DEPO-PROVERA [Suspect]
     Active Substance: MEDROXYPROGESTERONE ACETATE
     Indication: CONTRACEPTION
     Dosage: UNK, EVERY 3 MONTHS
     Route: 058
     Dates: start: 20141203
  2. DEPO-PROVERA [Suspect]
     Active Substance: MEDROXYPROGESTERONE ACETATE
     Dosage: UNK, EVERY 3 MONTHS
     Route: 058
     Dates: start: 20140918
  3. DEPO-PROVERA [Suspect]
     Active Substance: MEDROXYPROGESTERONE ACETATE
     Dosage: UNK, EVERY 3 MONTHS
     Route: 058
     Dates: start: 20150610
  4. TAMIFLU [Concomitant]
     Active Substance: OSELTAMIVIR PHOSPHATE
     Dosage: 75 MG, 2X/DAY
     Route: 048
  5. DEPO-PROVERA [Suspect]
     Active Substance: MEDROXYPROGESTERONE ACETATE
     Indication: CONTRACEPTION
     Dosage: UNK, EVERY 3 MONTHS
     Route: 030
     Dates: start: 2014, end: 201508
  6. DEPO-PROVERA [Suspect]
     Active Substance: MEDROXYPROGESTERONE ACETATE
     Dosage: UNK, EVERY 3 MONTHS
     Route: 058
     Dates: start: 20150316
  7. DEPO-PROVERA [Suspect]
     Active Substance: MEDROXYPROGESTERONE ACETATE
     Dosage: UNK, EVERY 3 MONTHS
     Route: 058
     Dates: start: 20150903

REACTIONS (13)
  - Skin induration [Unknown]
  - Injection site necrosis [Not Recovered/Not Resolved]
  - Injection site pain [Not Recovered/Not Resolved]
  - Hyperaesthesia [Unknown]
  - Pain in extremity [Unknown]
  - Hunger [Unknown]
  - Peripheral swelling [Unknown]
  - Breast mass [Unknown]
  - Fibrocystic breast disease [Unknown]
  - Paraesthesia [Unknown]
  - Blood thyroid stimulating hormone increased [Unknown]
  - Breast pain [Unknown]
  - Weight increased [Unknown]

NARRATIVE: CASE EVENT DATE: 201505
